FAERS Safety Report 4315519-1 (Version None)
Quarter: 2004Q1

REPORT INFORMATION
  Report Type: 
  Country: None (occurrence: None)
  Receive Date: 20040309
  Receipt Date: 20040227
  Transmission Date: 20041129
  Serious: Yes (Death)
  Sender: FDA-Public Use
  Company Number: US_980807977

PATIENT
  Age: 0 Year
  Sex: Female

DRUGS (4)
  1. HUMULIN N [Suspect]
  2. NPH ILETIN I (BEEF-PORK) [Suspect]
  3. ILETIN I [Suspect]
  4. PRENATAL VITAMINS [Concomitant]

REACTIONS (8)
  - ABORTION SPONTANEOUS [None]
  - COMPLICATIONS OF MATERNAL EXPOSURE TO THERAPEUTIC DRUGS [None]
  - FOETAL HEART RATE ABNORMAL [None]
  - HYPOGLYCAEMIA [None]
  - LOSS OF CONSCIOUSNESS [None]
  - MATERNAL DRUGS AFFECTING FOETUS [None]
  - PREGNANCY [None]
  - TOOTH INFECTION [None]
